FAERS Safety Report 8574032-6 (Version None)
Quarter: 2012Q3

REPORT INFORMATION
  Report Type: 
  Country: None (occurrence: None)
  Receive Date: 20120806
  Receipt Date: 20120724
  Transmission Date: 20120928
  Serious: Yes (Death, Hospitalization, Other)
  Sender: FDA-Public Use
  Company Number: FI-ELI_LILLY_AND_COMPANY-FI201206001421

PATIENT
  Age: 45 Year
  Sex: Female

DRUGS (9)
  1. ZYPREXA [Suspect]
     Dosage: 5 MG, QD
     Route: 048
     Dates: start: 20080101
  2. CALCIUM CARBONATE [Concomitant]
  3. SIMVASTATIN [Concomitant]
     Dosage: 10 MG, UNK
  4. NEUROTOL [Concomitant]
     Dosage: 700 MG, UNK
  5. PANTOPRAZOLE [Concomitant]
     Dosage: 40 MG, UNK
  6. TOPAMAX [Concomitant]
     Dosage: 1200 MG, UNK
  7. ZYPREXA [Suspect]
     Dosage: 15 MG, QD
  8. ZYPREXA [Suspect]
     Dosage: 10 MG, UNK
     Route: 030
  9. LYRICA [Concomitant]
     Dosage: 600 MG, UNK

REACTIONS (3)
  - DEATH [None]
  - HOSPITALISATION [None]
  - MULTIPLE DRUG OVERDOSE INTENTIONAL [None]
